FAERS Safety Report 25847149 (Version 1)
Quarter: 2025Q3

REPORT INFORMATION
  Report Type: Spontaneous
  Country: US (occurrence: None)
  Receive Date: 20250923
  Receipt Date: 20250923
  Transmission Date: 20251020
  Serious: Yes (Hospitalization)
  Sender: FDA-CTU
  Company Number: None

PATIENT
  Sex: Female

DRUGS (1)
  1. KISQALI [Suspect]
     Active Substance: RIBOCICLIB SUCCINATE
     Indication: Breast cancer female
     Dosage: 200 G GRAM(S) DAILY ORAL ?
     Route: 048
     Dates: start: 20250416

REACTIONS (3)
  - Cerebrovascular accident [None]
  - Myocardial infarction [None]
  - Therapy cessation [None]
